FAERS Safety Report 25372960 (Version 1)
Quarter: 2025Q2

REPORT INFORMATION
  Report Type: Spontaneous
  Country: US (occurrence: US)
  Receive Date: 20250529
  Receipt Date: 20250529
  Transmission Date: 20250717
  Serious: No
  Sender: CIPLA
  Company Number: US-CIPLA LTD.-2024US15262

PATIENT

DRUGS (17)
  1. ALBUTEROL [Suspect]
     Active Substance: ALBUTEROL
     Indication: Bronchitis
     Dosage: 180 MICROGRAM, QID (EVERY 6 HOURS (BY MOUTH))
     Dates: start: 20241210, end: 2024
  2. AMLODIPINE [Concomitant]
     Active Substance: AMLODIPINE BESYLATE
     Indication: Hypertension
     Dosage: 2.5 MILLIGRAM, QD (PROBABLY 5 YEARS AGO OFF AND ON)
     Route: 065
     Dates: start: 2019
  3. CRESTOR [Concomitant]
     Active Substance: ROSUVASTATIN CALCIUM
     Indication: Hypercholesterolaemia
     Route: 065
     Dates: start: 2016
  4. ARNUITY ELLIPTA [Concomitant]
     Active Substance: FLUTICASONE FUROATE
     Indication: Chronic obstructive pulmonary disease
     Route: 065
     Dates: start: 2022
  5. METOPROLOL [Concomitant]
     Active Substance: METOPROLOL
     Indication: Hypertension
     Dosage: 25 MILLIGRAM, QD (AT BED TIME), ER (PROBABLY 5 YEARS AGO)
     Route: 065
     Dates: start: 2019
  6. SERTRALINE [Concomitant]
     Active Substance: SERTRALINE HYDROCHLORIDE
     Indication: Depression
     Dosage: 50 MILLIGRAM, QD (PROBABLY 12 YEARS AGO)
     Route: 065
     Dates: start: 2012
  7. DIOVAN [Concomitant]
     Active Substance: VALSARTAN
     Indication: Hypertension
     Dosage: 320 MILLIGRAM, QD (AT BEDTIME) (5 YEARS AGO)
     Route: 065
     Dates: start: 2019
  8. TRAZODONE [Concomitant]
     Active Substance: TRAZODONE HYDROCHLORIDE
     Indication: Dementia
     Dosage: 100 MILLIGRAM, QD (AT BED TIME) (6 MONTHS AGO)
     Route: 065
     Dates: start: 202406
  9. ADVIL [Concomitant]
     Active Substance: IBUPROFEN
     Indication: Arthralgia
     Dosage: 400 MILLIGRAM, BID (PROBABLY 6 MONTHS AGO)
     Route: 065
     Dates: start: 202406
  10. VITAMIN B12 [Concomitant]
     Active Substance: CYANOCOBALAMIN
     Indication: Pernicious anaemia
     Route: 065
     Dates: start: 2004
  11. CALTRATE [Concomitant]
     Active Substance: CALCIUM CARBONATE
     Indication: Osteoporosis
     Dosage: 12 (UNSPECIFIED UNITS), BID (ABOUT 5 YEARS AGO)
     Route: 065
     Dates: start: 2019
  12. FOLIC ACID [Concomitant]
     Active Substance: FOLIC ACID
     Indication: Cardiac disorder
     Dosage: 400 MICROGRAM, QD (PROBABLY 6 YEARS AGO)
     Route: 065
     Dates: start: 2018
  13. VITAMIN D3 [Concomitant]
     Active Substance: CHOLECALCIFEROL
     Indication: Osteoporosis
     Dosage: 1000 INTERNATIONAL UNIT, QD (5 YEARS AGO)
     Route: 065
     Dates: start: 2019
  14. MELATONIN [Concomitant]
     Active Substance: MELATONIN
     Indication: Insomnia
     Dosage: 10 MILLIGRAM, QD (AT BEDTIME) (ABOUT 1 YEAR AGO)
     Route: 065
     Dates: start: 2023
  15. CEFTIN [Concomitant]
     Active Substance: CEFUROXIME AXETIL
     Indication: Bronchitis
     Dosage: 500 MILLIGRAM, BID
     Route: 065
     Dates: start: 20241210, end: 20241215
  16. PREDNISONE [Concomitant]
     Active Substance: PREDNISONE
     Indication: Bronchitis
     Route: 048
     Dates: start: 20241210, end: 20241215
  17. BENZONATATE [Concomitant]
     Active Substance: BENZONATATE
     Indication: Cough
     Dosage: 200 MILLIGRAM, TID
     Route: 065
     Dates: start: 20241209, end: 20241215

REACTIONS (3)
  - Drug dose omission by device [Unknown]
  - Device delivery system issue [Unknown]
  - Device issue [Unknown]

NARRATIVE: CASE EVENT DATE: 20241210
